FAERS Safety Report 15726986 (Version 2)
Quarter: 2019Q1

REPORT INFORMATION
  Report Type: Spontaneous
  Country: US (occurrence: US)
  Receive Date: 20181217
  Receipt Date: 20190221
  Transmission Date: 20190417
  Serious: No
  Sender: FDA-Public Use
  Company Number: US-ASTRAZENECA-2018SF61939

PATIENT
  Age: 31960 Day
  Sex: Male
  Weight: 97 kg

DRUGS (2)
  1. LEVOTHYROXINE. [Concomitant]
     Active Substance: LEVOTHYROXINE
     Indication: THYROID THERAPY
  2. SYMBICORT [Suspect]
     Active Substance: BUDESONIDE\FORMOTEROL FUMARATE DIHYDRATE
     Indication: ASTHMA
     Dosage: 160/ 4.5 MCG, ONE INHALATION TWICE DAILY
     Route: 055

REACTIONS (14)
  - Product use complaint [Unknown]
  - Intentional device misuse [Unknown]
  - Dyspnoea [Unknown]
  - Memory impairment [Unknown]
  - Off label use [Unknown]
  - Glaucoma [Unknown]
  - Thyroid hormones increased [Unknown]
  - Device malfunction [Unknown]
  - Device failure [Unknown]
  - Off label use of device [Unknown]
  - Presyncope [Unknown]
  - Gait disturbance [Unknown]
  - Wrong technique in product usage process [Unknown]
  - Product dose omission [Unknown]
